FAERS Safety Report 13787845 (Version 1)
Quarter: 2017Q3

REPORT INFORMATION
  Report Type: Spontaneous
  Country: US (occurrence: US)
  Receive Date: 20170725
  Receipt Date: 20170725
  Transmission Date: 20171127
  Serious: No
  Sender: FDA-Public Use
  Company Number: US-UNITED THERAPEUTICS-UNT-2017-000694

PATIENT
  Age: 61 Year
  Sex: Female
  Weight: 90.7 kg

DRUGS (3)
  1. TYVASO [Suspect]
     Active Substance: TREPROSTINIL
     Dosage: UNK
  2. TYVASO [Suspect]
     Active Substance: TREPROSTINIL
     Indication: PULMONARY ARTERIAL HYPERTENSION
     Dosage: 18 - 54 ?G, QID
     Dates: start: 20161129
  3. TYVASO [Suspect]
     Active Substance: TREPROSTINIL
     Dosage: UNK
     Dates: start: 20170113

REACTIONS (8)
  - Throat irritation [Unknown]
  - Rhinorrhoea [Unknown]
  - Musculoskeletal pain [Unknown]
  - Nasal disorder [Unknown]
  - Seasonal allergy [Unknown]
  - Sneezing [Unknown]
  - Oropharyngeal pain [Unknown]
  - Cough [Not Recovered/Not Resolved]

NARRATIVE: CASE EVENT DATE: 201701
